FAERS Safety Report 16126909 (Version 1)
Quarter: 2019Q1

REPORT INFORMATION
  Report Type: Spontaneous
  Country: NL (occurrence: NL)
  Receive Date: 20190328
  Receipt Date: 20190328
  Transmission Date: 20190418
  Serious: Yes (Life-Threatening, Hospitalization)
  Sender: FDA-Public Use
  Company Number: NL-ACCORD-116328

PATIENT
  Age: 52 Year
  Sex: Female
  Weight: 100 kg

DRUGS (5)
  1. TRAZODONE [Concomitant]
     Active Substance: TRAZODONE HYDROCHLORIDE
     Dosage: 100 MILLIGRAMS PER DAY
  2. QUETIAPINE. [Suspect]
     Active Substance: QUETIAPINE
     Indication: ANXIETY
     Dosage: 1X 75 MILLIGRAMS PER DAY
     Dates: start: 2011
  3. DIAZEPAM. [Concomitant]
     Active Substance: DIAZEPAM
     Dosage: 25 MILLIGRAMS PER DAY
  4. LEVOMEPROMAZINE [Suspect]
     Active Substance: LEVOMEPROMAZINE
     Indication: SLEEP DISORDER
     Dosage: 1X 50 MILLIGRAMS PER DAY
     Dates: start: 201810, end: 20181205
  5. NORTRIPTYLINE [Concomitant]
     Active Substance: NORTRIPTYLINE
     Dosage: 50 MILLIGRAMS PER DAY

REACTIONS (2)
  - Pulmonary embolism [Recovering/Resolving]
  - Off label use [Unknown]

NARRATIVE: CASE EVENT DATE: 20181205
